FAERS Safety Report 5678755-8 (Version None)
Quarter: 2008Q1

REPORT INFORMATION
  Report Type: 
  Country: None (occurrence: None)
  Receive Date: 20080321
  Receipt Date: 20080307
  Transmission Date: 20080703
  Serious: Yes (Hospitalization)
  Sender: FDA-Public Use
  Company Number: 2008BI001374

PATIENT
  Age: 55 Year
  Sex: Female

DRUGS (1)
  1. AVONEX [Suspect]
     Indication: MULTIPLE SCLEROSIS
     Dosage: 30 UG; QW; IM
     Route: 030
     Dates: start: 19991115

REACTIONS (7)
  - CONDITION AGGRAVATED [None]
  - DEHYDRATION [None]
  - DIABETES MELLITUS [None]
  - HERPES ZOSTER [None]
  - MULTIPLE SCLEROSIS [None]
  - POLYURIA [None]
  - URINARY TRACT INFECTION [None]
